FAERS Safety Report 5515102-6 (Version None)
Quarter: 2007Q4

REPORT INFORMATION
  Report Type: 
  Country: None (occurrence: None)
  Receive Date: 20071113
  Receipt Date: 20070104
  Transmission Date: 20080405
  Serious: No
  Sender: FDA-Public Use
  Company Number: A0634141A

PATIENT
  Age: 49 Year
  Sex: Male

DRUGS (3)
  1. COREG [Suspect]
     Indication: HYPERTENSION
     Dosage: 6.25MG TWICE PER DAY
     Route: 048
     Dates: start: 20061101, end: 20061201
  2. ASPIRIN [Concomitant]
  3. TYLENOL [Concomitant]

REACTIONS (9)
  - CHEST PAIN [None]
  - FEELING ABNORMAL [None]
  - HEADACHE [None]
  - HYPERSENSITIVITY [None]
  - PARAESTHESIA [None]
  - PERIPHERAL COLDNESS [None]
  - RASH [None]
  - SKIN IRRITATION [None]
  - VISION BLURRED [None]
